FAERS Safety Report 10385551 (Version 1)
Quarter: 2014Q3

REPORT INFORMATION
  Report Type: Spontaneous
  Country: US (occurrence: US)
  Receive Date: 20140814
  Receipt Date: 20140814
  Transmission Date: 20150326
  Serious: Yes (Hospitalization)
  Sender: FDA-Public Use
  Company Number: US-B.I. PHARMACEUTICALS,INC./RIDGEFIELD-2014-BI-36896BP

PATIENT
  Age: 73 Year
  Sex: Female

DRUGS (14)
  1. ASPIRIN. [Concomitant]
     Active Substance: ASPIRIN
     Dosage: 325 MG
     Route: 048
  2. FOLIC ACID. [Concomitant]
     Active Substance: FOLIC ACID
     Route: 065
  3. GARLIC. [Concomitant]
     Active Substance: GARLIC
     Dosage: 1000 MG
     Route: 048
  4. METFORMIN [Concomitant]
     Active Substance: METFORMIN HYDROCHLORIDE
     Dosage: 1000 MG
     Route: 065
  5. PRADAXA [Suspect]
     Active Substance: DABIGATRAN ETEXILATE MESYLATE
     Indication: ATRIAL FIBRILLATION
     Dosage: 300 MG
     Route: 048
     Dates: end: 20110804
  6. VITAMIN B COMPLEX [Concomitant]
     Active Substance: CYANOCOBALAMIN\DEXPANTHENOL\NIACINAMIDE\PYRIDOXINE HYDROCHLORIDE\RIBOFLAVIN 5^-PHOSPHATE SODIUM\THIAMINE HYDROCHLORIDE\VITAMIN B COMPLEX
     Dosage: 1 ANZ
     Route: 048
  7. CRESTOR [Concomitant]
     Active Substance: ROSUVASTATIN CALCIUM
     Dosage: 10 MG
     Route: 048
  8. MUCINEX [Concomitant]
     Active Substance: GUAIFENESIN
     Dosage: 600 MG
     Route: 048
  9. VITAMIN E [Concomitant]
     Active Substance: .ALPHA.-TOCOPHEROL
     Dosage: 400 U
     Route: 048
  10. DIOVAN [Concomitant]
     Active Substance: VALSARTAN
     Dosage: 80 MG
     Route: 048
  11. METOPROLOL [Concomitant]
     Active Substance: METOPROLOL
     Dosage: 200 MG
     Route: 048
  12. LASIX [Concomitant]
     Active Substance: FUROSEMIDE
     Dosage: 80 MG
     Route: 048
  13. CAPTOPRIL. [Concomitant]
     Active Substance: CAPTOPRIL
     Dosage: 75 MG
     Route: 048
  14. GINKGO BILOBA [Concomitant]
     Active Substance: GINKGO
     Dosage: 240 MG
     Route: 048

REACTIONS (5)
  - Haemorrhagic anaemia [Unknown]
  - Acute prerenal failure [Unknown]
  - Upper gastrointestinal haemorrhage [Unknown]
  - Coagulopathy [Unknown]
  - Fall [Unknown]

NARRATIVE: CASE EVENT DATE: 20110802
